FAERS Safety Report 18973436 (Version 2)
Quarter: 2021Q2

REPORT INFORMATION
  Report Type: Other
  Country: US (occurrence: US)
  Receive Date: 20210305
  Receipt Date: 20210406
  Transmission Date: 20210717
  Serious: Yes (Hospitalization)
  Sender: FDA-Public Use
  Company Number: US-ROCHE-2779580

PATIENT
  Sex: Female

DRUGS (1)
  1. VALCYTE [Suspect]
     Active Substance: VALGANCICLOVIR HYDROCHLORIDE
     Indication: CYTOMEGALOVIRUS INFECTION
     Dosage: 450MG BID
     Route: 065

REACTIONS (5)
  - Asthenia [Unknown]
  - Illness [Unknown]
  - Tremor [Unknown]
  - Fatigue [Unknown]
  - Product prescribing error [Unknown]
